FAERS Safety Report 5709809-5 (Version None)
Quarter: 2008Q2

REPORT INFORMATION
  Report Type: 
  Country: None (occurrence: None)
  Receive Date: 20080417
  Receipt Date: 20080417
  Transmission Date: 20081010
  Serious: Yes (Life-Threatening)
  Sender: FDA-Public Use
  Company Number: None

PATIENT
  Age: 46 Year

DRUGS (2)
  1. REOPRO [Suspect]
  2. HEPARIN [Suspect]

REACTIONS (5)
  - ABSCESS [None]
  - ARTERIAL RUPTURE [None]
  - HYPOTENSION [None]
  - LARGE INTESTINE PERFORATION [None]
  - RETROPERITONEAL HAEMORRHAGE [None]
